FAERS Safety Report 25923508 (Version 1)
Quarter: 2025Q4

REPORT INFORMATION
  Report Type: Spontaneous
  Country: US (occurrence: US)
  Receive Date: 20251015
  Receipt Date: 20251015
  Transmission Date: 20260117
  Serious: No
  Sender: ROCHE
  Company Number: US-ROCHE-10000402648

PATIENT
  Age: 74 Year
  Sex: Female

DRUGS (7)
  1. VABYSMO [Suspect]
     Active Substance: FARICIMAB-SVOA
     Indication: Neovascular age-related macular degeneration
     Route: 050
  2. VABYSMO [Suspect]
     Active Substance: FARICIMAB-SVOA
  3. VABYSMO [Suspect]
     Active Substance: FARICIMAB-SVOA
  4. VABYSMO [Suspect]
     Active Substance: FARICIMAB-SVOA
  5. ATROPINE [Concomitant]
     Active Substance: ATROPINE
  6. TIMOLOL [Concomitant]
     Active Substance: TIMOLOL
  7. LATANOPROST [Concomitant]
     Active Substance: LATANOPROST

REACTIONS (2)
  - Eye pain [Unknown]
  - Photophobia [Unknown]

NARRATIVE: CASE EVENT DATE: 20250927
